FAERS Safety Report 6539759-6 (Version None)
Quarter: 2010Q1

REPORT INFORMATION
  Report Type: 
  Country: None (occurrence: None)
  Receive Date: 20100115
  Receipt Date: 20100113
  Transmission Date: 20100710
  Serious: Yes (Hospitalization, Other)
  Sender: FDA-Public Use
  Company Number: BE-ROXANE LABORATORIES, INC.-2010-RO-00017RO

PATIENT
  Age: 54 Year
  Sex: Female

DRUGS (4)
  1. COCAINE [Suspect]
  2. ASPIRIN [Concomitant]
     Indication: CORONARY ARTERY DISSECTION
  3. STATIN [Concomitant]
     Indication: CORONARY ARTERY DISSECTION
  4. ANGIOTENSIN-CONVERTIN ENZYME INHIBITION [Concomitant]
     Indication: CORONARY ARTERY DISSECTION

REACTIONS (4)
  - CORONARY ARTERY DISSECTION [None]
  - CORONARY ARTERY STENOSIS [None]
  - DRUG ABUSE [None]
  - VASOCONSTRICTION [None]
